FAERS Safety Report 19437157 (Version 1)
Quarter: 2021Q2

REPORT INFORMATION
  Report Type: Spontaneous
  Country: US (occurrence: US)
  Receive Date: 20210618
  Receipt Date: 20210618
  Transmission Date: 20210717
  Serious: Yes (Other)
  Sender: FDA-Public Use
  Company Number: US-HIKMA PHARMACEUTICALS USA INC.-US-H14001-21-02844

PATIENT
  Age: 53 Year
  Sex: Male

DRUGS (3)
  1. VALACYCLOVIR [Concomitant]
     Active Substance: VALACYCLOVIR HYDROCHLORIDE
     Indication: HERPES SIMPLEX
     Route: 065
  2. PREDNISONE. [Suspect]
     Active Substance: PREDNISONE
     Indication: NECROTISING RETINITIS
     Route: 048
  3. FOSCARNET [Concomitant]
     Active Substance: FOSCARNET
     Indication: NECROTISING RETINITIS
     Dosage: 24MG/0.1ML

REACTIONS (2)
  - Retinal tear [Unknown]
  - Retinal detachment [Unknown]
